FAERS Safety Report 4404703-4 (Version None)
Quarter: 2004Q3

REPORT INFORMATION
  Report Type: 
  Country: None (occurrence: None)
  Receive Date: 20040715
  Receipt Date: 20040702
  Transmission Date: 20050211
  Serious: Yes (Death)
  Sender: FDA-Public Use
  Company Number: 2004IM000742

PATIENT
  Age: 74 Year
  Sex: Male

DRUGS (7)
  1. ACTIMMUNE [Suspect]
     Indication: INTERSTITIAL LUNG DISEASE
     Dosage: 200 UG;TIW;SUBCUTANEOUS
     Route: 058
     Dates: start: 20020901, end: 20040601
  2. MEDROL [Concomitant]
  3. CARDIZEM [Concomitant]
  4. DIFLUCAN [Concomitant]
  5. LASIX [Concomitant]
  6. POTASSIUM [Concomitant]
  7. OXYGEN [Concomitant]

REACTIONS (1)
  - CARCINOMA [None]
